FAERS Safety Report 22081243 (Version 2)
Quarter: 2023Q1

REPORT INFORMATION
  Report Type: Spontaneous
  Country: UA (occurrence: UA)
  Receive Date: 20230309
  Receipt Date: 20230323
  Transmission Date: 20230418
  Serious: Yes (Hospitalization)
  Sender: FDA-Public Use
  Company Number: UA-TEVA-2023-UA-2863309

PATIENT
  Age: 57 Year
  Sex: Female

DRUGS (2)
  1. METOCLOPRAMIDE [Suspect]
     Active Substance: METOCLOPRAMIDE
     Indication: Migraine without aura
     Dosage: 2ML
     Route: 030
  2. ZOLMITRIPTAN [Suspect]
     Active Substance: ZOLMITRIPTAN
     Indication: Migraine without aura
     Dosage: 5MG
     Route: 065

REACTIONS (3)
  - Haemorrhagic stroke [Recovering/Resolving]
  - Subdural haematoma [Recovered/Resolved]
  - Drug ineffective [Unknown]
